FAERS Safety Report 20827280 (Version 1)
Quarter: 2022Q2

REPORT INFORMATION
  Report Type: Spontaneous
  Country: US (occurrence: None)
  Receive Date: 20220513
  Receipt Date: 20220513
  Transmission Date: 20220721
  Serious: Yes (Other)
  Sender: FDA-Public Use
  Company Number: None

PATIENT
  Sex: Male

DRUGS (3)
  1. HUMIRA [Suspect]
     Active Substance: ADALIMUMAB
     Indication: Crohn^s disease
     Dosage: 40 MG/0.8ML? INJECT 1 PEN UNDER THE SKIN (SUBCUTANEOUS INJECTION) EVERY OTHER WEEK
     Route: 058
     Dates: start: 20150819
  2. HUMIRA [Suspect]
     Active Substance: ADALIMUMAB
     Dosage: OTHER QUANTITY : 1 PEN ;?FREQUENCY : EVERY OTHER WEEK;?
     Route: 058
  3. DICYCLOMINE [Concomitant]

REACTIONS (3)
  - Abdominal pain [None]
  - Diarrhoea [None]
  - Therapy interrupted [None]
